FAERS Safety Report 6604308-0 (Version None)
Quarter: 2010Q1

REPORT INFORMATION
  Report Type: 
  Country: None (occurrence: None)
  Receive Date: 20100226
  Receipt Date: 20090807
  Transmission Date: 20100710
  Serious: No
  Sender: FDA-Public Use
  Company Number: A0802141A

PATIENT
  Age: 28 Year
  Sex: Female

DRUGS (6)
  1. LAMICTAL CD [Suspect]
     Dosage: 200U UNKNOWN
     Route: 048
     Dates: start: 20090301
  2. KLONOPIN [Concomitant]
  3. WELLBUTRIN SR [Concomitant]
  4. SEROQUEL [Concomitant]
  5. TOPAMAX [Concomitant]
  6. TRAZODONE HCL [Concomitant]

REACTIONS (1)
  - LACTOSE INTOLERANCE [None]
